FAERS Safety Report 9321020 (Version 4)
Quarter: 2013Q3

REPORT INFORMATION
  Report Type: Spontaneous
  Country: US (occurrence: US)
  Receive Date: 20130531
  Receipt Date: 20130819
  Transmission Date: 20140515
  Serious: Yes (Other)
  Sender: FDA-Public Use
  Company Number: US-PFIZER INC-2013164990

PATIENT
  Age: 32 Year
  Sex: Male

DRUGS (2)
  1. SUTENT [Suspect]
     Indication: THYROID CANCER
     Dosage: 37.5 MG, CYCLIC (37.5 MG DAILY FOR 28 DAYS, OFF 14 DAYS)
     Route: 048
     Dates: start: 20130116
  2. SUTENT [Suspect]
     Dosage: 50 MG, CYCLIC (50 MG DAILY FOR 28 DAYS, OFF FOR 14 DAYS)
     Dates: start: 20130708

REACTIONS (4)
  - Local swelling [Unknown]
  - Nausea [Unknown]
  - Hair colour changes [Unknown]
  - Off label use [Unknown]
